FAERS Safety Report 5677430-3 (Version None)
Quarter: 2008Q1

REPORT INFORMATION
  Report Type: 
  Country: None (occurrence: None)
  Receive Date: 20080318
  Receipt Date: 20080229
  Transmission Date: 20080703
  Serious: Yes (Other)
  Sender: FDA-Public Use
  Company Number: S08-CAN-00941-01

PATIENT
  Age: 41 Year
  Sex: Female

DRUGS (1)
  1. CELEXA [Suspect]
     Dosage: 20 MG QD PO
     Route: 048

REACTIONS (5)
  - ABDOMINAL DISCOMFORT [None]
  - CHEST DISCOMFORT [None]
  - NAUSEA [None]
  - PAIN [None]
  - TREMOR [None]
